FAERS Safety Report 18672887 (Version 7)
Quarter: 2021Q4

REPORT INFORMATION
  Report Type: Spontaneous
  Country: JP (occurrence: JP)
  Receive Date: 20201228
  Receipt Date: 20211220
  Transmission Date: 20220303
  Serious: Yes (Hospitalization, Other)
  Sender: FDA-Public Use
  Company Number: JP-SANOFI-2019SA266871

PATIENT
  Age: 3 Year
  Sex: Female
  Weight: 16.1 kg

DRUGS (33)
  1. VIGABATRIN [Suspect]
     Active Substance: VIGABATRIN
     Indication: Infantile spasms
     Dosage: 600 MG, BID
     Route: 048
     Dates: start: 20191217, end: 20200831
  2. VIGABATRIN [Suspect]
     Active Substance: VIGABATRIN
     Dosage: 750 MG, BID
     Route: 048
     Dates: start: 20190813, end: 20191203
  3. VIGABATRIN [Suspect]
     Active Substance: VIGABATRIN
     Dosage: 125 MG, BID
     Route: 048
     Dates: start: 20190304, end: 20190317
  4. VIGABATRIN [Suspect]
     Active Substance: VIGABATRIN
     Dosage: 250 MG, BID
     Route: 048
     Dates: start: 20190318, end: 20190401
  5. VIGABATRIN [Suspect]
     Active Substance: VIGABATRIN
     Dosage: 375 MG, BID
     Route: 048
     Dates: start: 20190402, end: 20190415
  6. VIGABATRIN [Suspect]
     Active Substance: VIGABATRIN
     Dosage: 300 MG, BID
     Route: 048
     Dates: start: 20190416, end: 20190422
  7. VIGABATRIN [Suspect]
     Active Substance: VIGABATRIN
     Dosage: 375 MG, BID
     Route: 048
     Dates: start: 20190423, end: 20190506
  8. VIGABATRIN [Suspect]
     Active Substance: VIGABATRIN
     Dosage: 400 MG, BID
     Route: 048
     Dates: start: 20190507, end: 20190520
  9. VIGABATRIN [Suspect]
     Active Substance: VIGABATRIN
     Dosage: 450 MG, BID
     Route: 048
     Dates: start: 20190521, end: 20190609
  10. VIGABATRIN [Suspect]
     Active Substance: VIGABATRIN
     Dosage: 500 MG, BID
     Route: 048
     Dates: start: 20190610, end: 20190624
  11. VIGABATRIN [Suspect]
     Active Substance: VIGABATRIN
     Dosage: 575 MG, BID
     Route: 048
     Dates: start: 20190625, end: 20190708
  12. VIGABATRIN [Suspect]
     Active Substance: VIGABATRIN
     Dosage: 700 MG, BID
     Route: 048
     Dates: start: 20190709, end: 20190812
  13. VIGABATRIN [Suspect]
     Active Substance: VIGABATRIN
     Dosage: 600 MG, BID
     Route: 048
     Dates: start: 20191204, end: 20191210
  14. VIGABATRIN [Suspect]
     Active Substance: VIGABATRIN
     Dosage: 400 MG, BID
     Route: 048
     Dates: start: 20191211, end: 20191216
  15. VIGABATRIN [Suspect]
     Active Substance: VIGABATRIN
     Dosage: DAILY DOSAGE 1000MG, BID
     Route: 048
     Dates: start: 20200901, end: 20201208
  16. VIGABATRIN [Suspect]
     Active Substance: VIGABATRIN
     Dosage: DAILY DOSAGE 800MG, BID
     Route: 048
     Dates: start: 20201209, end: 20201213
  17. VIGABATRIN [Suspect]
     Active Substance: VIGABATRIN
     Dosage: DAILY DOSAGE 600MG, BID
     Route: 048
     Dates: start: 20201214, end: 20201218
  18. VIGABATRIN [Suspect]
     Active Substance: VIGABATRIN
     Dosage: DAILY DOSAGE 400MG, BID
     Route: 048
     Dates: start: 20201219, end: 20210608
  19. VIGABATRIN [Suspect]
     Active Substance: VIGABATRIN
     Dosage: DAILY DOSAGE 300 MG, BID
     Route: 048
     Dates: start: 20210609, end: 20210615
  20. VIGABATRIN [Suspect]
     Active Substance: VIGABATRIN
     Dosage: DAILY DOSAGE 200 MG, BID
     Route: 048
     Dates: start: 20210616, end: 20210622
  21. VIGABATRIN [Suspect]
     Active Substance: VIGABATRIN
     Dosage: DAILY DOSAGE 100 MG, BID
     Route: 048
     Dates: start: 20210623, end: 20210629
  22. EVEROLIMUS [Suspect]
     Active Substance: EVEROLIMUS
     Indication: Product used for unknown indication
     Dosage: DAILY DOSE: 25 MG
     Route: 048
     Dates: end: 20210215
  23. VALERIN MAX [Concomitant]
     Indication: Infantile spasms
     Dosage: 4 ML, QD
     Route: 048
     Dates: start: 20170502
  24. VALERIN MAX [Concomitant]
     Dosage: DAILY DOSE: 200 MG
     Route: 048
     Dates: end: 20200831
  25. VALERIN MAX [Concomitant]
     Dosage: DAILY DOSE: 300 MG
     Route: 048
     Dates: start: 20200901, end: 20201005
  26. VALERIN MAX [Concomitant]
     Dosage: DAILY DOSE: 400 MG
     Route: 065
     Dates: start: 20201006, end: 20201207
  27. VALERIN MAX [Concomitant]
     Dosage: DAILY DOSE: 500 MG
     Route: 048
     Dates: start: 20201208
  28. TOPIRAMATE [Concomitant]
     Active Substance: TOPIRAMATE
     Indication: Infantile spasms
     Dosage: 130 MG, QD
     Route: 048
     Dates: start: 20181210, end: 20200914
  29. TOPIRAMATE [Concomitant]
     Active Substance: TOPIRAMATE
     Dosage: DAILY DOSE: 170 MG
     Route: 048
     Dates: start: 20200915
  30. FERRIC PYROPHOSPHATE [Concomitant]
     Active Substance: FERRIC PYROPHOSPHATE
     Indication: Iron deficiency anaemia
     Dosage: 2 ML, QD
     Route: 048
     Dates: start: 20191217
  31. LAMOTRIGINE [Concomitant]
     Active Substance: LAMOTRIGINE
     Indication: Infantile spasms
     Dosage: 80 MG, QD
     Route: 048
     Dates: start: 20180730, end: 20201006
  32. LAMOTRIGINE [Concomitant]
     Active Substance: LAMOTRIGINE
     Dosage: DAILY DOSE: 90 MG
     Route: 048
     Dates: start: 20201006, end: 20201109
  33. LAMOTRIGINE [Concomitant]
     Active Substance: LAMOTRIGINE
     Dosage: DAILY DOSE: 100 MG
     Route: 048
     Dates: start: 20201110

REACTIONS (12)
  - Wheezing [Recovered/Resolved]
  - Pyrexia [Recovered/Resolved]
  - Retinogram abnormal [Recovered/Resolved]
  - Retinal disorder [Not Recovered/Not Resolved]
  - Retinal disorder [Not Recovered/Not Resolved]
  - Retinal disorder [Not Recovered/Not Resolved]
  - Retinal disorder [Not Recovered/Not Resolved]
  - Retinogram abnormal [Unknown]
  - Retinal disorder [Unknown]
  - Retinogram abnormal [Not Recovered/Not Resolved]
  - Astigmatism [Not Recovered/Not Resolved]
  - Drug ineffective [Unknown]

NARRATIVE: CASE EVENT DATE: 20190917
